FAERS Safety Report 10225503 (Version 2)
Quarter: 2014Q2

REPORT INFORMATION
  Report Type: Spontaneous
  Country: US (occurrence: US)
  Receive Date: 20140609
  Receipt Date: 20140609
  Transmission Date: 20141212
  Serious: Yes (Other)
  Sender: FDA-Public Use
  Company Number: US-ASTELLAS-2014US001903

PATIENT
  Age: 52 Year
  Sex: Male

DRUGS (7)
  1. PROGRAF [Suspect]
     Indication: LIVER TRANSPLANT
     Route: 048
     Dates: start: 20021213
  2. IBUPROFEN [Concomitant]
     Indication: PAIN
     Route: 065
  3. OXYCODONE / ACETAMINOPHEN [Concomitant]
     Indication: PRODUCT USED FOR UNKNOWN INDICATION
     Dosage: 10-650 MG, EVERY 6 HOURS, PRN
     Route: 048
  4. LEVOTHYROXINE SODIUM [Concomitant]
     Indication: PRODUCT USED FOR UNKNOWN INDICATION
     Route: 048
  5. LORAZEPAM [Concomitant]
     Indication: PRODUCT USED FOR UNKNOWN INDICATION
     Dosage: 1 MG, TWICE DAILY, AS NEEDED
     Route: 048
  6. RESTORIL                           /00054301/ [Concomitant]
     Indication: PRODUCT USED FOR UNKNOWN INDICATION
     Dosage: 30 MG, AT BEDTIME, AS NEEDED
     Route: 048
  7. QUESTRAN LIGHT [Concomitant]
     Indication: PRODUCT USED FOR UNKNOWN INDICATION
     Dosage: 4 G, TWICE DAILY, AS NEEDED
     Route: 048

REACTIONS (2)
  - Amnesia [Unknown]
  - Platelet count decreased [Recovering/Resolving]
